FAERS Safety Report 13592421 (Version 2)
Quarter: 2017Q2

REPORT INFORMATION
  Report Type: Spontaneous
  Country: JP (occurrence: JP)
  Receive Date: 20170530
  Receipt Date: 20170619
  Transmission Date: 20170830
  Serious: Yes (Hospitalization)
  Sender: FDA-Public Use
  Company Number: JP-JNJFOC-20170527132

PATIENT
  Age: 8 Decade
  Sex: Female

DRUGS (2)
  1. SIMPONI [Concomitant]
     Active Substance: GOLIMUMAB
     Route: 058
  2. REMICADE [Suspect]
     Active Substance: INFLIXIMAB
     Indication: RHEUMATOID ARTHRITIS
     Route: 042

REACTIONS (2)
  - Fracture [Unknown]
  - Treatment noncompliance [Unknown]
